FAERS Safety Report 6370494-3 (Version None)
Quarter: 2009Q3

REPORT INFORMATION
  Report Type: 
  Country: None (occurrence: None)
  Receive Date: 20090923
  Receipt Date: 20090916
  Transmission Date: 20100115
  Serious: Yes (Other)
  Sender: FDA-Public Use
  Company Number: CH-KINGPHARMUSA00001-K200901156

PATIENT
  Age: 48 Year
  Sex: Female

DRUGS (1)
  1. SEPTRA [Suspect]
     Indication: NEPHROLITHIASIS
     Dosage: UNK

REACTIONS (3)
  - ACUTE GENERALISED EXANTHEMATOUS PUSTULOSIS [None]
  - LEUKOCYTOCLASTIC VASCULITIS [None]
  - RASH PUSTULAR [None]
